FAERS Safety Report 5050305-9 (Version None)
Quarter: 2006Q3

REPORT INFORMATION
  Report Type: 
  Country: None (occurrence: None)
  Receive Date: 20060713
  Receipt Date: 20060605
  Transmission Date: 20061208
  Serious: Yes (Hospitalization)
  Sender: FDA-Public Use
  Company Number: 2006CG01201

PATIENT
  Age: 32 Year
  Sex: Female

DRUGS (6)
  1. MOPRAL [Suspect]
     Indication: DUODENAL ULCER
     Route: 048
     Dates: end: 20040101
  2. MOPRAL [Suspect]
     Indication: ABDOMINAL PAIN UPPER
     Route: 048
     Dates: end: 20040101
  3. MOPRAL [Suspect]
     Indication: DYSPEPSIA
     Route: 048
     Dates: end: 20040101
  4. LANSOR [Suspect]
     Indication: DUODENAL ULCER
     Route: 048
     Dates: start: 20040101, end: 20040501
  5. LANSOR [Suspect]
     Indication: ABDOMINAL PAIN UPPER
     Route: 048
     Dates: start: 20040101, end: 20040501
  6. LANSOR [Suspect]
     Indication: DYSPEPSIA
     Route: 048
     Dates: start: 20040101, end: 20040501

REACTIONS (2)
  - BLOOD CHROMOGRANIN A INCREASED [None]
  - LABILE HYPERTENSION [None]
